FAERS Safety Report 8175310-5 (Version None)
Quarter: 2012Q1

REPORT INFORMATION
  Report Type: 
  Country: None (occurrence: None)
  Receive Date: 20120229
  Receipt Date: 20120223
  Transmission Date: 20120608
  Serious: Yes (Other)
  Sender: FDA-Public Use
  Company Number: PHHY2012AU002915

PATIENT
  Sex: Female

DRUGS (3)
  1. ZOLEDRONOC ACID [Interacting]
     Dosage: UNK UKN, UNK
     Route: 042
     Dates: start: 20111201
  2. ALENDROS [Interacting]
     Dosage: ONCE WEEKLY
     Route: 048
     Dates: end: 20111201
  3. ZOLEDRONOC ACID [Suspect]
     Dosage: UNK UKN, UNK
     Route: 042
     Dates: start: 20100101

REACTIONS (4)
  - DRUG INTERACTION [None]
  - ATRIAL FIBRILLATION [None]
  - DRUG PRESCRIBING ERROR [None]
  - CEREBROVASCULAR ACCIDENT [None]
